FAERS Safety Report 8373930-6 (Version None)
Quarter: 2012Q2

REPORT INFORMATION
  Report Type: 
  Country: None (occurrence: None)
  Receive Date: 20120521
  Receipt Date: 20120511
  Transmission Date: 20120825
  Serious: Yes (Hospitalization)
  Sender: FDA-Public Use
  Company Number: DE-ABBOTT-12P-062-0934395-00

PATIENT
  Sex: Male
  Weight: 110 kg

DRUGS (2)
  1. TRUVADA [Concomitant]
     Indication: HIV INFECTION
     Dosage: IN THE MORNING
     Dates: start: 20100303
  2. KALETRA [Suspect]
     Indication: HIV INFECTION
     Dates: start: 20100303

REACTIONS (3)
  - SYPHILIS [None]
  - PAPILLOMA VIRAL INFECTION [None]
  - ANOGENITAL WARTS [None]
